FAERS Safety Report 5872746-X (Version None)
Quarter: 2008Q3

REPORT INFORMATION
  Report Type: 
  Country: None (occurrence: None)
  Receive Date: 20080905
  Receipt Date: 20080828
  Transmission Date: 20090109
  Serious: Yes (Disabling, Other)
  Sender: FDA-Public Use
  Company Number: US-PFIZER INC-2008060836

PATIENT
  Sex: Male
  Weight: 72.727 kg

DRUGS (6)
  1. DETROL LA [Suspect]
     Indication: URINARY HESITATION
     Dates: start: 20080715, end: 20080716
  2. FLUOXETINE [Concomitant]
  3. TERAZOSIN HCL [Concomitant]
  4. OMEPRAZOLE [Concomitant]
  5. SINGULAIR [Concomitant]
  6. LORATADINE [Concomitant]

REACTIONS (2)
  - ABDOMINAL PAIN [None]
  - DISABILITY [None]
